FAERS Safety Report 24706805 (Version 1)
Quarter: 2024Q4

REPORT INFORMATION
  Report Type: Spontaneous
  Country: US (occurrence: None)
  Receive Date: 20241206
  Receipt Date: 20241206
  Transmission Date: 20250115
  Serious: Yes (Hospitalization)
  Sender: Public
  Company Number: None

PATIENT
  Age: 44 Year
  Sex: Female

DRUGS (1)
  1. BIKTARVY [Suspect]
     Active Substance: BICTEGRAVIR SODIUM\EMTRICITABINE\TENOFOVIR ALAFENAMIDE FUMARATE
     Indication: HIV infection
     Dosage: OTHER QUANTITY : 50/200/25 MG;?FREQUENCY : DAILY;?
     Route: 048
     Dates: start: 20240119

REACTIONS (3)
  - Vulval cancer [None]
  - Necrotising fasciitis [None]
  - Post procedural complication [None]

NARRATIVE: CASE EVENT DATE: 20241030
